FAERS Safety Report 7562081-6 (Version None)
Quarter: 2011Q2

REPORT INFORMATION
  Report Type: 
  Country: None (occurrence: None)
  Receive Date: 20110622
  Receipt Date: 20110614
  Transmission Date: 20111010
  Serious: Yes (Hospitalization)
  Sender: FDA-Public Use
  Company Number: FR-AMGEN-FRASP2011030987

PATIENT
  Age: 71 Year
  Sex: Female

DRUGS (1)
  1. ENBREL [Suspect]
     Indication: RHEUMATOID ARTHRITIS
     Dosage: 50 MG, WEEKLY
     Dates: start: 20100801, end: 20110501

REACTIONS (4)
  - STAPHYLOCOCCAL INFECTION [None]
  - LUNG INFECTION [None]
  - MEDIASTINAL DISORDER [None]
  - BRONCHITIS BACTERIAL [None]
